FAERS Safety Report 8355685 (Version 3)
Quarter: 2012Q4

REPORT INFORMATION
  Report Type: Report from Study
  Country: US (occurrence: US)
  Receive Date: 20120126
  Receipt Date: 20120910
  Transmission Date: 20130627
  Serious: Yes (Hospitalization, Other)
  Sender: FDA-Public Use
  Company Number: US-CELGENEUS-163-21880-12012043

PATIENT
  Age: 69 Year
  Sex: Female

DRUGS (2)
  1. REVLIMID [Suspect]
     Indication: MULTIPLE MYELOMA
     Route: 048
  2. TRANSFUSION [Concomitant]
     Indication: DRUG USE FOR UNKNOWN INDICATION
     Dosage: 2 Units
     Route: 041

REACTIONS (5)
  - Blood lactate dehydrogenase abnormal [Unknown]
  - Aspartate aminotransferase abnormal [Unknown]
  - Plasma cell myeloma [Unknown]
  - Pneumonia [Unknown]
  - Back pain [Unknown]
